FAERS Safety Report 9908780 (Version 1)
Quarter: 2014Q1

REPORT INFORMATION
  Report Type: Spontaneous
  Country: US (occurrence: US)
  Receive Date: 20140219
  Receipt Date: 20140219
  Transmission Date: 20141002
  Serious: No
  Sender: FDA-Public Use
  Company Number: US-009507513-1402USA008441

PATIENT
  Age: 24 Year
  Sex: Male

DRUGS (1)
  1. INTRONA [Suspect]
     Indication: T-CELL LYMPHOMA
     Dosage: 0.5 ML, THREE TIMES WEEKLY
     Dates: start: 20140203, end: 20140211

REACTIONS (1)
  - Depression [Recovered/Resolved]
